FAERS Safety Report 14963379 (Version 1)
Quarter: 2018Q2

REPORT INFORMATION
  Report Type: Spontaneous
  Country: US (occurrence: US)
  Receive Date: 20180601
  Receipt Date: 20180601
  Transmission Date: 20180711
  Serious: No
  Sender: FDA-Public Use
  Company Number: US-ABBVIE-18S-163-2268165-00

PATIENT
  Sex: Female
  Weight: 40.86 kg

DRUGS (1)
  1. DRONABINOL. [Suspect]
     Active Substance: DRONABINOL
     Indication: DECREASED APPETITE
     Route: 048
     Dates: start: 20180208

REACTIONS (1)
  - Dizziness [Unknown]
